FAERS Safety Report 7396065-8 (Version None)
Quarter: 2011Q2

REPORT INFORMATION
  Report Type: 
  Country: None (occurrence: None)
  Receive Date: 20110406
  Receipt Date: 20110323
  Transmission Date: 20111010
  Serious: Yes (Other)
  Sender: FDA-Public Use
  Company Number: FR-JNJFOC-20110310834

PATIENT
  Age: 7 Week
  Sex: Female
  Weight: 4.65 kg

DRUGS (2)
  1. DAKTARIN [Suspect]
     Indication: RELAXATION THERAPY
     Route: 048
  2. DAKTARIN [Suspect]
     Route: 048

REACTIONS (1)
  - HYPERKALAEMIA [None]
